FAERS Safety Report 7361584-7 (Version None)
Quarter: 2011Q1

REPORT INFORMATION
  Report Type: 
  Country: None (occurrence: None)
  Receive Date: 20110318
  Receipt Date: 20110315
  Transmission Date: 20110831
  Serious: Yes (Other)
  Sender: FDA-Public Use
  Company Number: CH-PFIZER INC-2011057665

PATIENT
  Age: 35 Year
  Sex: Female

DRUGS (3)
  1. TEMESTA [Suspect]
     Indication: MENTAL DISORDER
     Route: 050
  2. ZOLOFT [Suspect]
     Indication: MENTAL DISORDER
     Dosage: UNK
     Route: 050
     Dates: end: 20100311
  3. XANAX [Suspect]
     Indication: MENTAL DISORDER
     Dosage: UNK
     Route: 050
     Dates: end: 20100311

REACTIONS (1)
  - ABORTION SPONTANEOUS [None]
